FAERS Safety Report 19881463 (Version 1)
Quarter: 2021Q3

REPORT INFORMATION
  Report Type: Spontaneous
  Country: JP (occurrence: JP)
  Receive Date: 20210924
  Receipt Date: 20210924
  Transmission Date: 20211014
  Serious: Yes (Death, Hospitalization)
  Sender: FDA-Public Use
  Company Number: JP-BRECKENRIDGE PHARMACEUTICAL, INC.-2118781

PATIENT
  Age: 59 Year
  Sex: Male
  Weight: 57 kg

DRUGS (9)
  1. LANSOPRAZOLE. [Suspect]
     Active Substance: LANSOPRAZOLE
     Indication: GASTROOESOPHAGEAL REFLUX DISEASE
     Route: 048
     Dates: end: 20210529
  2. TELMISARTAN. [Concomitant]
     Active Substance: TELMISARTAN
  3. LANTHANUM CARBONATE HYDRATE [Concomitant]
     Active Substance: LANTHANUM CARBONATE
  4. EBASTINE [Concomitant]
     Active Substance: EBASTINE
  5. CILNIDIPINE [Concomitant]
     Active Substance: CILNIDIPINE
  6. CARVEDILOL. [Concomitant]
     Active Substance: CARVEDILOL
  7. FEBUXOSTAT. [Concomitant]
     Active Substance: FEBUXOSTAT
  8. LEVETIRACETAM. [Suspect]
     Active Substance: LEVETIRACETAM
     Route: 048
  9. CALCIUM CARBONATE. [Concomitant]
     Active Substance: CALCIUM CARBONATE

REACTIONS (3)
  - Meningioma [None]
  - Seizure [None]
  - Drug reaction with eosinophilia and systemic symptoms [Fatal]
